FAERS Safety Report 7806844-8 (Version None)
Quarter: 2011Q4

REPORT INFORMATION
  Report Type: 
  Country: None (occurrence: None)
  Receive Date: 20111011
  Receipt Date: 20111005
  Transmission Date: 20120403
  Serious: Yes (Death, Hospitalization, Other)
  Sender: FDA-Public Use
  Company Number: IE-PFIZER INC-2003123341

PATIENT
  Age: 20 Year
  Sex: Female

DRUGS (4)
  1. ALBUTEROL SULFATE [Suspect]
     Indication: TOXICITY TO VARIOUS AGENTS
     Dosage: UNK
  2. MEFENAMIC ACID [Suspect]
     Indication: TOXICITY TO VARIOUS AGENTS
     Dosage: UNK
  3. PHENYTOIN SODIUM [Suspect]
     Indication: TOXICITY TO VARIOUS AGENTS
     Dosage: UNK
  4. ACETAMINOPHEN [Suspect]
     Indication: TOXICITY TO VARIOUS AGENTS
     Dosage: UNK
     Route: 048
     Dates: start: 19980901

REACTIONS (7)
  - ENCEPHALOPATHY [None]
  - CONVULSION [None]
  - THERAPEUTIC RESPONSE INCREASED [None]
  - OVERDOSE [None]
  - PYREXIA [None]
  - HEPATIC FAILURE [None]
  - RENAL IMPAIRMENT [None]
